FAERS Safety Report 9281494 (Version 1)
Quarter: 2013Q2

REPORT INFORMATION
  Report Type: Spontaneous
  Country: CN (occurrence: CN)
  Receive Date: 20130509
  Receipt Date: 20130509
  Transmission Date: 20140414
  Serious: Yes (Other)
  Sender: FDA-Public Use
  Company Number: CN-PFIZER INC-2013141439

PATIENT
  Age: 69 Year
  Sex: Female
  Weight: 44 kg

DRUGS (3)
  1. LIPITOR [Suspect]
     Dosage: 20 MG, ONCE DAILY
     Route: 048
     Dates: start: 201302
  2. LIPITOR [Suspect]
     Dosage: 0.5 DF, ONCE DAILY
     Route: 048
     Dates: start: 201303
  3. LIPITOR [Suspect]
     Dosage: 0.25 DF, ONCE DAILY
     Route: 048
     Dates: start: 201304

REACTIONS (5)
  - Starvation [Unknown]
  - Vision blurred [Unknown]
  - Malaise [Unknown]
  - Alanine aminotransferase increased [Unknown]
  - Aspartate aminotransferase increased [Unknown]
